FAERS Safety Report 14217049 (Version 1)
Quarter: 2017Q4

REPORT INFORMATION
  Report Type: Spontaneous
  Country: FR (occurrence: FR)
  Receive Date: 20171122
  Receipt Date: 20171122
  Transmission Date: 20180321
  Serious: Yes (Other)
  Sender: FDA-Public Use
  Company Number: FR-MERCK KGAA-2034938

PATIENT
  Age: 50 Year
  Sex: Male

DRUGS (1)
  1. NOVOTHYROX [Suspect]
     Active Substance: LEVOTHYROXINE SODIUM
     Indication: HYPOTHYROIDISM
     Route: 048
     Dates: start: 20170701, end: 20170820

REACTIONS (5)
  - Depression [Unknown]
  - Fatigue [Unknown]
  - Gastrointestinal disorder [Unknown]
  - Palpitations [Unknown]
  - Muscle spasms [Unknown]

NARRATIVE: CASE EVENT DATE: 201707
